FAERS Safety Report 9471416 (Version 2)
Quarter: 2013Q4

REPORT INFORMATION
  Report Type: Spontaneous
  Country: US (occurrence: US)
  Receive Date: 20130822
  Receipt Date: 20131021
  Transmission Date: 20140711
  Serious: Yes (Other)
  Sender: FDA-Public Use
  Company Number: US-TEVA-427104USA

PATIENT
  Sex: Female

DRUGS (1)
  1. CARBOPLATIN [Suspect]
     Dosage: 10MG/ML. 150MG PCH

REACTIONS (3)
  - Endotoxaemia [Unknown]
  - Pyrexia [Unknown]
  - Product contamination microbial [Unknown]
